FAERS Safety Report 7885081-5 (Version None)
Quarter: 2011Q4

REPORT INFORMATION
  Report Type: 
  Country: None (occurrence: None)
  Receive Date: 20111102
  Receipt Date: 20100728
  Transmission Date: 20120403
  Serious: No
  Sender: FDA-Public Use
  Company Number: US-BAYER-201029295NA

PATIENT
  Sex: Male

DRUGS (2)
  1. ANTIHYPERTENSIVES [Concomitant]
     Indication: HYPERTENSION
  2. LEVITRA [Suspect]
     Dosage: UNK
     Dates: start: 20090701

REACTIONS (1)
  - UNEVALUABLE EVENT [None]
